FAERS Safety Report 4402771-7 (Version None)
Quarter: 2004Q3

REPORT INFORMATION
  Report Type: 
  Country: None (occurrence: None)
  Receive Date: 20040719
  Receipt Date: 20040205
  Transmission Date: 20050211
  Serious: Yes (Hospitalization)
  Sender: FDA-Public Use
  Company Number: DRON00204000324

PATIENT
  Age: 58 Year
  Sex: Female
  Weight: 85.5 kg

DRUGS (16)
  1. MARINOL [Suspect]
     Indication: VOMITING
     Dosage: 2.5 MG BID PO, SEE IMAGE
     Route: 048
     Dates: start: 20040130, end: 20040130
  2. MARINOL [Suspect]
     Indication: VOMITING
     Dosage: 2.5 MG BID PO, SEE IMAGE
     Route: 048
     Dates: start: 20040131, end: 20040131
  3. MARINOL [Suspect]
     Indication: VOMITING
     Dosage: 2.5 MG BID PO, SEE IMAGE
     Route: 048
     Dates: start: 20040201, end: 20040201
  4. ONDANSETRON HCL [Suspect]
     Indication: VOMITING
     Dosage: 16 MG DAILY IV, SEE IMAGE
     Route: 042
     Dates: start: 20040130, end: 20040130
  5. ONDANSETRON HCL [Suspect]
     Indication: VOMITING
     Dosage: 16 MG DAILY IV, SEE IMAGE
     Route: 042
     Dates: start: 20040131, end: 20040131
  6. ONDANSETRON HCL [Suspect]
     Indication: VOMITING
     Dosage: 16 MG DAILY IV, SEE IMAGE
     Route: 042
     Dates: start: 20040201, end: 20040201
  7. DEXAMETHASONE [Suspect]
     Indication: VOMITING
     Dosage: 20 MG DAILY PO
     Route: 048
     Dates: start: 20040130, end: 20040130
  8. VITAMIN C [Concomitant]
  9. GLUCOSAMINE [Concomitant]
  10. CALCIUM [Concomitant]
  11. FOLIC ACID [Concomitant]
  12. CENTRUM [Concomitant]
  13. LISINOPRIL [Concomitant]
  14. HYDROCHLOROTHIAZIDE [Concomitant]
  15. VITAMIN E [Concomitant]
  16. ASPIRIN [Concomitant]

REACTIONS (7)
  - BLOOD PRESSURE DIASTOLIC DECREASED [None]
  - DIZZINESS [None]
  - FATIGUE [None]
  - FEELING ABNORMAL [None]
  - MARKEDLY REDUCED DIETARY INTAKE [None]
  - NAUSEA [None]
  - SYNCOPE [None]
